FAERS Safety Report 5499289-X (Version None)
Quarter: 2007Q4

REPORT INFORMATION
  Report Type: 
  Country: None (occurrence: None)
  Receive Date: 20071026
  Receipt Date: 20071012
  Transmission Date: 20080405
  Serious: Yes (Hospitalization)
  Sender: FDA-Public Use
  Company Number: CZ-JNJFOC-20071003485

PATIENT
  Sex: Female

DRUGS (5)
  1. INFLIXIMAB [Suspect]
     Indication: RHEUMATOID ARTHRITIS
     Route: 042
  2. CELEBREX [Concomitant]
     Route: 048
  3. MTX [Concomitant]
     Indication: RHEUMATOID ARTHRITIS
     Route: 048
  4. MIACALCIN [Concomitant]
     Route: 045
  5. CALTRATE PLUS [Concomitant]
     Route: 048

REACTIONS (1)
  - SURGERY [None]
